FAERS Safety Report 10262449 (Version 2)
Quarter: 2014Q2

REPORT INFORMATION
  Report Type: Spontaneous
  Country: JP (occurrence: JP)
  Receive Date: 20140626
  Receipt Date: 20140626
  Transmission Date: 20141212
  Serious: Yes (Other)
  Sender: FDA-Public Use
  Company Number: JP-JNJFOC-20140515766

PATIENT
  Age: 7 Decade
  Sex: 0

DRUGS (3)
  1. SOVRIAD [Suspect]
     Indication: CHRONIC HEPATITIS C
     Route: 048
  2. COPEGUS [Suspect]
     Indication: CHRONIC HEPATITIS C
     Route: 048
  3. PEGASYS [Concomitant]
     Indication: CHRONIC HEPATITIS C
     Route: 058

REACTIONS (1)
  - Haemoglobin decreased [Recovered/Resolved]
